FAERS Safety Report 23547529 (Version 2)
Quarter: 2024Q3

REPORT INFORMATION
  Report Type: Spontaneous
  Country: AT (occurrence: AT)
  Receive Date: 20240221
  Receipt Date: 20240805
  Transmission Date: 20241017
  Serious: Yes (Death, Hospitalization, Other)
  Sender: ROCHE
  Company Number: AT-ROCHE-3511326

PATIENT
  Age: 63 Year
  Sex: Female
  Weight: 55.0 kg

DRUGS (48)
  1. PERJETA [Suspect]
     Active Substance: PERTUZUMAB
     Indication: Breast cancer
     Route: 065
     Dates: start: 20180719, end: 20180719
  2. PERJETA [Suspect]
     Active Substance: PERTUZUMAB
     Route: 065
     Dates: start: 20180809, end: 20190704
  3. CAPECITABINE [Suspect]
     Active Substance: CAPECITABINE
     Indication: Breast cancer
     Route: 048
     Dates: start: 20200326, end: 20200430
  4. CAPECITABINE [Suspect]
     Active Substance: CAPECITABINE
     Route: 048
     Dates: start: 20200512, end: 20200519
  5. KADCYLA [Suspect]
     Active Substance: ADO-TRASTUZUMAB EMTANSINE
     Indication: Breast cancer
     Route: 065
     Dates: start: 20191003, end: 20200213
  6. KADCYLA [Suspect]
     Active Substance: ADO-TRASTUZUMAB EMTANSINE
     Route: 065
     Dates: start: 20190829, end: 20190829
  7. HERCEPTIN [Suspect]
     Active Substance: TRASTUZUMAB
     Indication: Breast cancer
     Route: 041
     Dates: start: 20180809, end: 20180809
  8. HERCEPTIN [Suspect]
     Active Substance: TRASTUZUMAB
     Route: 041
     Dates: start: 20180830, end: 20181105
  9. HERCEPTIN [Suspect]
     Active Substance: TRASTUZUMAB
     Route: 041
     Dates: start: 20180719, end: 20180719
  10. ABEMACICLIB [Suspect]
     Active Substance: ABEMACICLIB
     Indication: Breast cancer
     Route: 065
     Dates: start: 20201029, end: 20201211
  11. NAVELBINE [Suspect]
     Active Substance: VINORELBINE TARTRATE
     Indication: Breast cancer
     Route: 065
     Dates: start: 20181210, end: 20190206
  12. NAVELBINE [Suspect]
     Active Substance: VINORELBINE TARTRATE
     Route: 065
     Dates: start: 20180719, end: 20181130
  13. NAVELBINE [Suspect]
     Active Substance: VINORELBINE TARTRATE
     Route: 065
     Dates: start: 20190206, end: 20190705
  14. AROMASIN [Suspect]
     Active Substance: EXEMESTANE
     Indication: Breast cancer
     Dosage: O.D. - ONCE DAILY
     Route: 065
     Dates: start: 20180719, end: 20190507
  15. FEMARA [Suspect]
     Active Substance: LETROZOLE
     Indication: Breast cancer
     Dosage: FREQUENCY: O.D. - ONCE DAILY MOST RECENT DOSE PRIOR TO THE EVENT: 12/MAY/2020
     Route: 065
     Dates: start: 20190508, end: 20190819
  16. FEMARA [Suspect]
     Active Substance: LETROZOLE
     Route: 065
     Dates: start: 20200512, end: 20201022
  17. TYKERB [Suspect]
     Active Substance: LAPATINIB DITOSYLATE
     Indication: Breast cancer
     Route: 065
     Dates: start: 20200829, end: 20201022
  18. TYKERB [Suspect]
     Active Substance: LAPATINIB DITOSYLATE
     Dosage: FREQUENCY: O.D. - ONCE DAILY.
     Route: 065
     Dates: start: 20200326, end: 20200723
  19. FASLODEX [Suspect]
     Active Substance: FULVESTRANT
     Indication: Breast cancer
     Route: 065
     Dates: start: 20201029, end: 20201111
  20. FASLODEX [Suspect]
     Active Substance: FULVESTRANT
     Route: 065
     Dates: start: 20201125, end: 20210110
  21. ONTRUZANT [Suspect]
     Active Substance: TRASTUZUMAB-DTTB
     Indication: Breast cancer
     Route: 065
     Dates: start: 20201109, end: 20201109
  22. ONTRUZANT [Suspect]
     Active Substance: TRASTUZUMAB-DTTB
     Route: 065
     Dates: start: 20181129, end: 20190516
  23. ONTRUZANT [Suspect]
     Active Substance: TRASTUZUMAB-DTTB
     Route: 065
     Dates: start: 20190613, end: 20190704
  24. ONTRUZANT [Suspect]
     Active Substance: TRASTUZUMAB-DTTB
     Route: 065
     Dates: start: 20201130, end: 20201221
  25. EUTHYROX [Concomitant]
     Active Substance: LEVOTHYROXINE SODIUM
  26. MAGNESIUM SUCCINATE [Concomitant]
     Route: 065
     Dates: start: 20190819
  27. KYTRIL [Concomitant]
     Active Substance: GRANISETRON HYDROCHLORIDE
  28. XGEVA [Concomitant]
     Active Substance: DENOSUMAB
     Route: 065
     Dates: start: 20181215
  29. IMODIUM AD [Concomitant]
     Active Substance: LOPERAMIDE HYDROCHLORIDE
     Indication: Diarrhoea
     Dates: start: 20180731
  30. ORNITHINE ASPARTATE [Concomitant]
     Active Substance: ORNITHINE ASPARTATE
  31. PREDNISOLONE [Concomitant]
     Active Substance: PREDNISOLONE
  32. HALDOL [Concomitant]
     Active Substance: HALOPERIDOL
  33. DEXPANTHENOL [Concomitant]
     Active Substance: DEXPANTHENOL
     Indication: Conjunctivitis
     Route: 065
     Dates: start: 20190221
  34. RANITIDINE HYDROCHLORIDE [Concomitant]
     Active Substance: RANITIDINE HYDROCHLORIDE
  35. DIMETHINDENE [Concomitant]
     Active Substance: DIMETHINDENE
  36. SUCRALFATE [Concomitant]
     Active Substance: SUCRALFATE
     Indication: Abdominal pain
     Dates: start: 20200512
  37. SUCRALFATE [Concomitant]
     Active Substance: SUCRALFATE
  38. AMOXICILLIN\CLAVULANATE POTASSIUM [Concomitant]
     Active Substance: AMOXICILLIN\CLAVULANATE POTASSIUM
  39. DIMENHYDRINATE [Concomitant]
     Active Substance: DIMENHYDRINATE
     Indication: Vertigo
     Dates: start: 20191218
  40. HYDROMORPHONE HYDROCHLORIDE [Concomitant]
     Active Substance: HYDROMORPHONE HYDROCHLORIDE
     Route: 065
     Dates: start: 20180727
  41. ESOMEPRAZOLE [Concomitant]
     Active Substance: ESOMEPRAZOLE
     Indication: Dysphagia
     Route: 065
     Dates: start: 20200207
  42. POLYETHYLENE GLYCOLS [Concomitant]
     Active Substance: POLYETHYLENE GLYCOLS
     Route: 065
     Dates: start: 20180719
  43. KONAKION [Concomitant]
     Active Substance: PHYTONADIONE
  44. MORPHINE [Concomitant]
     Active Substance: MORPHINE
  45. DEXABENE [Concomitant]
  46. DEXAMETHASONE [Concomitant]
     Active Substance: DEXAMETHASONE
     Indication: Vertigo
     Dates: start: 20191114
  47. NOVALGINA [Concomitant]
     Active Substance: ACETAMINOPHEN\CAFFEINE
     Dates: start: 20180727
  48. ZOFRAN [Concomitant]
     Active Substance: ONDANSETRON HYDROCHLORIDE
     Indication: Nausea
     Dates: start: 20190919

REACTIONS (4)
  - Mouth haemorrhage [Unknown]
  - Hepatic failure [Fatal]
  - Hepatic encephalopathy [Unknown]
  - Disease progression [Unknown]

NARRATIVE: CASE EVENT DATE: 20201130
